FAERS Safety Report 11050818 (Version 1)
Quarter: 2015Q2

REPORT INFORMATION
  Report Type: Spontaneous
  Country: US (occurrence: None)
  Receive Date: 20150417
  Receipt Date: 20150417
  Transmission Date: 20150821
  Serious: Yes (Life-Threatening, Other)
  Sender: FDA-Public Use
  Company Number: ADR-2015-00470

PATIENT
  Age: 50 Year
  Sex: Male

DRUGS (4)
  1. COMPOUNDED BACLOFEN INTRATHECAL [Suspect]
     Active Substance: BACLOFEN
     Indication: PAIN
  2. FENTANYL INTRATHECAL [Suspect]
     Active Substance: FENTANYL
     Indication: PAIN
  3. BUPIVACAINE INTRATHECAL [Suspect]
     Active Substance: BUPIVACAINE
  4. CLONIDINE. [Suspect]
     Active Substance: CLONIDINE

REACTIONS (5)
  - Respiratory arrest [None]
  - Formication [None]
  - Device power source issue [None]
  - Malaise [None]
  - Electromagnetic interference [None]

NARRATIVE: CASE EVENT DATE: 20150302
